FAERS Safety Report 4654270-5 (Version None)
Quarter: 2005Q2

REPORT INFORMATION
  Report Type: 
  Country: None (occurrence: None)
  Receive Date: 20050404
  Receipt Date: 20041213
  Transmission Date: 20051028
  Serious: No
  Sender: FDA-Public Use
  Company Number: USA041285940

PATIENT
  Age: 46 Year
  Sex: Female

DRUGS (2)
  1. CYMBALTA [Suspect]
     Indication: ANXIETY
     Dosage: 30 MG
     Dates: start: 20041210
  2. ATENOLOL [Concomitant]

REACTIONS (4)
  - FEELING ABNORMAL [None]
  - HANGOVER [None]
  - HEADACHE [None]
  - SOMNOLENCE [None]
